FAERS Safety Report 11390068 (Version 2)
Quarter: 2015Q4

REPORT INFORMATION
  Report Type: Spontaneous
  Country: US (occurrence: US)
  Receive Date: 20150818
  Receipt Date: 20151016
  Transmission Date: 20160304
  Serious: No
  Sender: FDA-Public Use
  Company Number: US-ASTRAZENECA-2015SE79204

PATIENT
  Sex: Female

DRUGS (3)
  1. PROLIA [Concomitant]
     Active Substance: DENOSUMAB
     Dosage: ^SHOT^
  2. NEXIUM 24HR [Suspect]
     Active Substance: ESOMEPRAZOLE MAGNESIUM
     Route: 048
  3. VITAMINS NOS [Concomitant]
     Active Substance: VITAMINS

REACTIONS (4)
  - Mobility decreased [Unknown]
  - Neck pain [Unknown]
  - Product packaging issue [Unknown]
  - Gastric disorder [Not Recovered/Not Resolved]
